FAERS Safety Report 23491598 (Version 1)
Quarter: 2024Q1

REPORT INFORMATION
  Report Type: Report from Study
  Country: GB (occurrence: GB)
  Receive Date: 20240207
  Receipt Date: 20240207
  Transmission Date: 20240409
  Serious: Yes (Other)
  Sender: FDA-Public Use
  Company Number: GB-UCBSA-2024005157

PATIENT
  Age: 34 Year
  Sex: Male

DRUGS (1)
  1. BIMEKIZUMAB [Suspect]
     Active Substance: BIMEKIZUMAB
     Indication: Psoriasis
     Dosage: 320 MILLIGRAM, EV 4 WEEKS
     Dates: start: 20231218

REACTIONS (3)
  - Lower respiratory tract infection [Unknown]
  - Sinus disorder [Unknown]
  - Cough [Unknown]

NARRATIVE: CASE EVENT DATE: 20240101
